FAERS Safety Report 21351116 (Version 1)
Quarter: 2022Q3

REPORT INFORMATION
  Report Type: Report from Study
  Country: US (occurrence: US)
  Receive Date: 20220919
  Receipt Date: 20220919
  Transmission Date: 20221027
  Serious: Yes (Hospitalization)
  Sender: FDA-Public Use
  Company Number: US-BRISTOL-MYERS SQUIBB COMPANY-2022-105705

PATIENT
  Age: 27 Year
  Sex: Female
  Weight: 66.224 kg

DRUGS (7)
  1. NIVOLUMAB [Suspect]
     Active Substance: NIVOLUMAB
     Indication: Uveal melanoma
     Dosage: ONGOING?PRIOR TO THE ONSET OF THE EVENT, THE LAST TREATMENT CYCLE WAS ON ?18-AUG-2022.
     Route: 042
     Dates: start: 20210927
  2. ZOFRAN [Concomitant]
     Active Substance: ONDANSETRON HYDROCHLORIDE
     Indication: Nausea
     Dosage: 1 DF- 1 TABLET (4 MG) ?AS NEEDED?TOTAL 30 TABLETS
     Route: 048
  3. CORTEF [Concomitant]
     Active Substance: HYDROCORTISONE
     Indication: Adrenal disorder
     Dosage: 1 DF- 1 TABLET (20 MG) ?1 TABLET EVERY MORNING AND 1 TABLET EVERY EVENING
     Route: 048
  4. CORTEF [Concomitant]
     Active Substance: HYDROCORTISONE
     Dosage: 1 DF- 1 TABLET (10 MG)?2 TABLETS (2 DF) TWICE DAILY FOR 30 DAYS?TOTAL 120 TABLETS
     Route: 048
  5. PROTONIX [Concomitant]
     Active Substance: PANTOPRAZOLE SODIUM
     Indication: Product used for unknown indication
     Dosage: 1 DF- 1 TABLET (40 MG)?TOTAL 30 TABLETS
     Route: 048
  6. VIENVA TM [Concomitant]
     Active Substance: ETHINYL ESTRADIOL\LEVONORGESTREL
     Indication: Product used for unknown indication
     Dosage: 1 DF- 1 TABLET (0.1 MG - 20 MCG PER TABLET)
     Route: 048
  7. MOTRIN [Concomitant]
     Active Substance: IBUPROFEN
     Indication: Product used for unknown indication
     Dosage: EVERY 8 HOURS, AS NEEDED
     Route: 048

REACTIONS (1)
  - Pleural effusion [Unknown]

NARRATIVE: CASE EVENT DATE: 20220912
